FAERS Safety Report 7523890-2 (Version None)
Quarter: 2011Q2

REPORT INFORMATION
  Report Type: 
  Country: None (occurrence: None)
  Receive Date: 20110603
  Receipt Date: 20110527
  Transmission Date: 20111010
  Serious: Yes (Hospitalization)
  Sender: FDA-Public Use
  Company Number: FR-MERCK-1106USA00072

PATIENT
  Age: 87 Year
  Sex: Female

DRUGS (10)
  1. LYRICA [Concomitant]
     Route: 048
     Dates: start: 20110121
  2. TERCIAN [Concomitant]
     Route: 048
  3. ACETAMINOPHEN [Concomitant]
     Route: 048
  4. EMEND [Suspect]
     Route: 048
     Dates: start: 20110209, end: 20110209
  5. ZOMETA [Suspect]
     Indication: METASTASES TO BONE
     Route: 042
     Dates: start: 20110131, end: 20110131
  6. FEMARA [Concomitant]
     Indication: BREAST CANCER RECURRENT
     Route: 048
     Dates: start: 20110204
  7. FORLAX [Concomitant]
     Route: 065
  8. OXYCONTIN [Concomitant]
     Route: 048
  9. PREDNISONE [Concomitant]
     Route: 048
  10. AMLODIPINE [Concomitant]
     Indication: HYPERTENSION
     Route: 048

REACTIONS (3)
  - ERYTHEMA [None]
  - PRURITUS [None]
  - MEDICATION ERROR [None]
